FAERS Safety Report 12239104 (Version 4)
Quarter: 2016Q2

REPORT INFORMATION
  Report Type: Report from Study
  Country: CA (occurrence: CA)
  Receive Date: 20160405
  Receipt Date: 20160505
  Transmission Date: 20160815
  Serious: Yes (Death, Life-Threatening)
  Sender: FDA-Public Use
  Company Number: PHHY2014CA090992

PATIENT
  Age: 56 Year
  Sex: Male

DRUGS (5)
  1. SANDOSTATIN [Suspect]
     Active Substance: OCTREOTIDE ACETATE
     Indication: NEUROENDOCRINE CARCINOMA
     Dosage: 100 UG, ONCE/SINGLE
     Route: 058
     Dates: start: 20140704, end: 20140704
  2. SANDOSTATIN LAR DEPOT [Suspect]
     Active Substance: OCTREOTIDE ACETATE
     Dosage: 60 MG, QMO (EVERY 28 DAYS)
     Route: 030
  3. FRAGMIN [Concomitant]
     Active Substance: DALTEPARIN SODIUM
     Indication: PRODUCT USED FOR UNKNOWN INDICATION
     Route: 065
  4. SANDOSTATIN LAR DEPOT [Suspect]
     Active Substance: OCTREOTIDE ACETATE
     Indication: NEUROENDOCRINE TUMOUR
     Dosage: 30 MG, QMO (EVERY 28 DAYS)
     Route: 030
     Dates: start: 20140717
  5. MORPHINE [Suspect]
     Active Substance: MORPHINE
     Indication: PAIN
     Route: 048

REACTIONS (32)
  - Pain in extremity [Unknown]
  - Back pain [Unknown]
  - Neuralgia [Unknown]
  - Productive cough [Unknown]
  - Vomiting [Unknown]
  - Death [Fatal]
  - Gait disturbance [Unknown]
  - Emotional disorder [Unknown]
  - Cerebral disorder [Unknown]
  - Chromaturia [Unknown]
  - Fatigue [Unknown]
  - Asthenia [Unknown]
  - Nausea [Unknown]
  - Injection site pain [Unknown]
  - Joint swelling [Unknown]
  - Sleep disorder [Unknown]
  - Appetite disorder [Unknown]
  - Loss of consciousness [Unknown]
  - Local swelling [Unknown]
  - Malaise [Unknown]
  - Hyperhidrosis [Unknown]
  - Sedation [Unknown]
  - General physical health deterioration [Unknown]
  - Dyspnoea [Unknown]
  - Peripheral swelling [Unknown]
  - Blood pressure increased [Unknown]
  - Weight decreased [Unknown]
  - Feeding disorder [Unknown]
  - Chest pain [Unknown]
  - Tremor [Unknown]
  - Constipation [Unknown]
  - Abdominal distension [Unknown]

NARRATIVE: CASE EVENT DATE: 20140717
